FAERS Safety Report 25178589 (Version 1)
Quarter: 2025Q2

REPORT INFORMATION
  Report Type: Spontaneous
  Country: ES (occurrence: A1)
  Receive Date: 20250409
  Receipt Date: 20250409
  Transmission Date: 20250716
  Serious: Yes (Disabling, Other)
  Sender: BRECKENRIDGE
  Company Number: A1-Breckenridge Pharmaceutical, Inc.-2174431

PATIENT
  Sex: Male

DRUGS (1)
  1. DULOXETINE [Suspect]
     Active Substance: DULOXETINE
     Indication: Anxiety

REACTIONS (1)
  - Cognitive disorder [Unknown]
